FAERS Safety Report 17763727 (Version 1)
Quarter: 2020Q2

REPORT INFORMATION
  Report Type: Spontaneous
  Country: FR (occurrence: FR)
  Receive Date: 20200510
  Receipt Date: 20200510
  Transmission Date: 20200714
  Serious: Yes (Hospitalization)
  Sender: FDA-Public Use
  Company Number: FR-CADILA HEALTHCARE LIMITED-FR-ZYDUS-024840

PATIENT

DRUGS (8)
  1. RAMIPRIL. [Suspect]
     Active Substance: RAMIPRIL
     Indication: POISONING DELIBERATE
     Dosage: 1 DOSAGE FORM,1 CP; IN TOTAL,(INTERVAL :1 TOTAL)
     Route: 048
     Dates: start: 20180606, end: 20180606
  2. ZOLPIDEM [Suspect]
     Active Substance: ZOLPIDEM TARTRATE
     Indication: POISONING DELIBERATE
     Dosage: 1 DOSAGE FORM,1 CP; IN TOTAL,(INTERVAL :1 TOTAL)
     Route: 048
     Dates: start: 20180606, end: 20180606
  3. ENALAPRIL [Suspect]
     Active Substance: ENALAPRIL
     Indication: POISONING DELIBERATE
     Dosage: 2 DOSAGE FORM,2 CP; IN TOTAL,(INTERVAL :1 TOTAL)
     Route: 048
     Dates: start: 20180606, end: 20180606
  4. METFORMIN [Suspect]
     Active Substance: METFORMIN HYDROCHLORIDE
     Indication: POISONING DELIBERATE
     Dosage: 2 DOSAGE FORM,2 CP; IN TOTAL,(INTERVAL :1 TOTAL)
     Route: 048
     Dates: start: 20180606, end: 20180606
  5. ZOPICLONE [Suspect]
     Active Substance: ZOPICLONE
     Indication: POISONING DELIBERATE
     Dosage: 2 DOSAGE FORM,2 CP; IN TOTAL,(INTERVAL :1 TOTAL)
     Route: 048
     Dates: start: 20180606, end: 20180606
  6. NATISPRAY [Concomitant]
     Active Substance: NITROGLYCERIN
     Indication: ANGINA PECTORIS
     Dosage: IF NECESSARY
     Route: 048
  7. VENTOLINE [Concomitant]
     Active Substance: ALBUTEROL
     Indication: ASTHMA
     Dosage: IF NECESSARY
     Route: 048
  8. SERETIDE [Concomitant]
     Active Substance: FLUTICASONE PROPIONATE\SALMETEROL XINAFOATE
     Indication: ASTHMA
     Dosage: IF NECESSARY
     Route: 048

REACTIONS (2)
  - Somnolence [Recovered/Resolved]
  - Dysarthria [Recovered/Resolved]

NARRATIVE: CASE EVENT DATE: 20180606
